FAERS Safety Report 12947295 (Version 1)
Quarter: 2016Q4

REPORT INFORMATION
  Report Type: Spontaneous
  Country: US (occurrence: US)
  Receive Date: 20161116
  Receipt Date: 20161116
  Transmission Date: 20170207
  Serious: Yes (Hospitalization)
  Sender: FDA-Public Use
  Company Number: US-G+W LABS-GW2016US000174

PATIENT

DRUGS (9)
  1. SECNIDAZOLE [Suspect]
     Active Substance: SECNIDAZOLE
     Indication: BLASTOCYSTIS INFECTION
     Dosage: UNK
     Route: 048
  2. NITAZOXANIDE [Concomitant]
     Active Substance: NITAZOXANIDE
  3. ETHINYLESTRADIOL W/NORETHINDRONE [Concomitant]
     Active Substance: ETHINYL ESTRADIOL\NORETHINDRONE
  4. METRONIDAZOLE. [Suspect]
     Active Substance: METRONIDAZOLE
     Indication: BLASTOCYSTIS INFECTION
     Dosage: 750 MG, TID
     Route: 048
  5. DIPHENHYDRAMINE. [Concomitant]
     Active Substance: DIPHENHYDRAMINE
  6. CIPROFLOXACIN. [Suspect]
     Active Substance: CIPROFLOXACIN
     Indication: BLASTOCYSTIS INFECTION
     Dosage: UNK
     Route: 048
  7. ACETAMINOPHEN. [Concomitant]
     Active Substance: ACETAMINOPHEN
  8. CIPROFLOXACIN. [Suspect]
     Active Substance: CIPROFLOXACIN
     Dosage: 500 MG, QD
     Route: 048
  9. HYDROCORTISONE. [Concomitant]
     Active Substance: HYDROCORTISONE
     Route: 061

REACTIONS (1)
  - Serum sickness-like reaction [Recovering/Resolving]
